FAERS Safety Report 7537278-1 (Version None)
Quarter: 2011Q2

REPORT INFORMATION
  Report Type: 
  Country: None (occurrence: None)
  Receive Date: 20110609
  Receipt Date: 20110606
  Transmission Date: 20111010
  Serious: No
  Sender: FDA-Public Use
  Company Number: US-PFIZER INC-2011122904

PATIENT
  Sex: Female
  Weight: 74 kg

DRUGS (2)
  1. CHANTIX [Suspect]
     Indication: SMOKING CESSATION THERAPY
     Dosage: 0.5 MG, 1X/DAY
     Route: 048
     Dates: start: 20110527, end: 20110101
  2. CHANTIX [Suspect]
     Dosage: 1 MG, 2X/DAY
     Route: 048
     Dates: start: 20110101, end: 20110603

REACTIONS (9)
  - GRIP STRENGTH DECREASED [None]
  - ARTHRALGIA [None]
  - HYPERSENSITIVITY [None]
  - PAIN [None]
  - HYPOAESTHESIA [None]
  - OEDEMA PERIPHERAL [None]
  - PRURITUS [None]
  - FEELING ABNORMAL [None]
  - ASTHENIA [None]
